FAERS Safety Report 8290246-7 (Version None)
Quarter: 2012Q2

REPORT INFORMATION
  Report Type: 
  Country: None (occurrence: None)
  Receive Date: 20120417
  Receipt Date: 20110613
  Transmission Date: 20120825
  Serious: Yes (Hospitalization)
  Sender: FDA-Public Use
  Company Number: US-BAYER-201038745NA

PATIENT
  Age: 43 Year
  Sex: Female
  Weight: 90.703 kg

DRUGS (13)
  1. PROVENTIL [Concomitant]
     Route: 055
  2. SINUVENT [GUAIFENESIN,PHENYLPROPANOLAMINE] [Concomitant]
     Indication: PRODUCTIVE COUGH
     Route: 048
  3. HYDROCHLOROTHIAZIDE [Concomitant]
     Dosage: 25 MG, UNK
  4. OMNICEF [Concomitant]
     Indication: ANTIBIOTIC THERAPY
     Route: 048
  5. YAZ [Suspect]
     Indication: PREMENSTRUAL SYNDROME
     Route: 048
     Dates: start: 20080401, end: 20081008
  6. PROCTOFOAM [HYDROCORTISONE ACETATE,PRAMOCAINE HYDROCHLORIDE] [Concomitant]
     Indication: HAEMORRHOIDS
     Route: 054
  7. PROCTOSOL HC [Concomitant]
  8. YAZ [Suspect]
  9. YAZ [Suspect]
     Indication: MENORRHAGIA
  10. LEVAQUIN [Concomitant]
     Indication: ANTIBIOTIC THERAPY
     Route: 048
  11. TRIAMCINOLONE ACETONIDE [Concomitant]
     Indication: RASH
     Route: 061
  12. ANUSOL HC [Concomitant]
     Indication: HAEMORRHOIDS
     Route: 054
  13. PROGESTERONE [Concomitant]
     Route: 061

REACTIONS (4)
  - DEEP VEIN THROMBOSIS [None]
  - PULMONARY EMBOLISM [None]
  - ANXIETY [None]
  - INJURY [None]
